FAERS Safety Report 24220412 (Version 5)
Quarter: 2024Q4

REPORT INFORMATION
  Report Type: Spontaneous
  Country: DE (occurrence: DE)
  Receive Date: 20240818
  Receipt Date: 20241016
  Transmission Date: 20250115
  Serious: Yes (Life-Threatening, Hospitalization, Other)
  Sender: AUROBINDO
  Company Number: DE-SANDOZ-SDZ2024DE070942

PATIENT
  Age: 12 Week
  Sex: Male

DRUGS (1)
  1. LIDOCAINE [Suspect]
     Active Substance: LIDOCAINE
     Indication: Local anaesthesia
     Dosage: UNK
     Route: 042

REACTIONS (9)
  - Seizure [Recovered/Resolved]
  - Sinus tachycardia [Recovered/Resolved]
  - Local anaesthetic systemic toxicity [Recovered/Resolved]
  - Altered state of consciousness [Recovered/Resolved]
  - Accidental overdose [Recovered/Resolved]
  - Epilepsy [Recovered/Resolved]
  - Overdose [Unknown]
  - Status epilepticus [Recovered/Resolved]
  - Incorrect route of product administration [Unknown]
